FAERS Safety Report 4662514-9 (Version None)
Quarter: 2005Q2

REPORT INFORMATION
  Report Type: 
  Country: None (occurrence: None)
  Receive Date: 20050512
  Receipt Date: 20050428
  Transmission Date: 20051028
  Serious: Yes (Hospitalization)
  Sender: FDA-Public Use
  Company Number: 2005-0008170

PATIENT
  Age: 56 Year
  Sex: Male
  Weight: 66 kg

DRUGS (4)
  1. VIREAD [Suspect]
     Dosage: 300 MG, 2 IN 1 D, ORAL
     Route: 048
     Dates: start: 20030417, end: 20050205
  2. VIDEX [Concomitant]
  3. NORVIR [Concomitant]
  4. AGENERASE [Concomitant]

REACTIONS (10)
  - CD4 LYMPHOCYTES DECREASED [None]
  - DIABETES MELLITUS NON-INSULIN-DEPENDENT [None]
  - DRY MOUTH [None]
  - FANCONI SYNDROME [None]
  - GENERAL PHYSICAL HEALTH DETERIORATION [None]
  - KERATOCONJUNCTIVITIS SICCA [None]
  - OVERDOSE [None]
  - RENAL FAILURE [None]
  - VIRAL LOAD INCREASED [None]
  - WEIGHT DECREASED [None]
